FAERS Safety Report 5818199-9 (Version None)
Quarter: 2008Q3

REPORT INFORMATION
  Report Type: 
  Country: None (occurrence: None)
  Receive Date: 20080716
  Receipt Date: 20080703
  Transmission Date: 20090109
  Serious: Yes (Other)
  Sender: FDA-Public Use
  Company Number: CERZ-1000280

PATIENT
  Age: 11 Year
  Sex: Female
  Weight: 33.5 kg

DRUGS (2)
  1. CEREZYME [Suspect]
     Indication: GAUCHER'S DISEASE
     Dosage: 30 U/KG, Q2W, INTRAVENOUS; 60 U/KG, Q2W, INTRAVENOUS
     Route: 042
     Dates: start: 20000510
  2. CEREZYME [Suspect]
     Indication: GAUCHER'S DISEASE
     Dosage: 30 U/KG, Q2W, INTRAVENOUS; 60 U/KG, Q2W, INTRAVENOUS
     Route: 042
     Dates: start: 20080107

REACTIONS (8)
  - CATHETER SITE PAIN [None]
  - CONVULSION [None]
  - FATIGUE [None]
  - INCREASED TENDENCY TO BRUISE [None]
  - PETECHIAE [None]
  - PLATELET COUNT DECREASED [None]
  - RASH MACULAR [None]
  - RESPIRATORY TRACT INFECTION [None]
